FAERS Safety Report 8899325 (Version 1)
Quarter: 2012Q4

REPORT INFORMATION
  Report Type: 
  Country: US (occurrence: US)
  Receive Date: 20121108
  Receipt Date: 20121108
  Transmission Date: 20130627
  Serious: No
  Sender: FDA-Public Use
  Company Number: US-AMGEN-USASP2012036434

PATIENT
  Age: 53 Year
  Sex: Female
  Weight: 99.34 kg

DRUGS (10)
  1. ENBREL [Suspect]
     Indication: PRODUCT USED FOR UNKNOWN INDICATION
     Dosage: 50 mg, 2 times/wk
     Route: 058
  2. LEXAPRO [Concomitant]
     Dosage: 10 mg, UNK
  3. KOMBIGLYZE [Concomitant]
  4. HYDROCHLOROTHIAZIDE [Concomitant]
     Dosage: 25 mg, UNK
  5. PRILOSEC                           /00661201/ [Concomitant]
     Dosage: 10 mg, UNK
  6. VITAMIN D /00107901/ [Concomitant]
  7. VITAMIN C                          /00008001/ [Concomitant]
     Dosage: 250 mg, UNK
  8. MULTIVITAMIN                       /00097801/ [Concomitant]
  9. TACLONEX [Concomitant]
  10. CLOBETASOL 0.05% [Concomitant]
     Dosage: 0.05 %, UNK

REACTIONS (1)
  - Mammoplasty [Unknown]
